FAERS Safety Report 16791388 (Version 1)
Quarter: 2019Q3

REPORT INFORMATION
  Report Type: Spontaneous
  Country: US (occurrence: US)
  Receive Date: 20190910
  Receipt Date: 20190910
  Transmission Date: 20191005
  Serious: No
  Sender: FDA-Public Use
  Company Number: US-BAYER-2019-166019

PATIENT
  Age: 77 Year
  Sex: Female
  Weight: 69 kg

DRUGS (8)
  1. COQ10 COMPLEX [Concomitant]
     Dosage: UNK
  2. FLAXSEED OIL [LINUM USITATISSIMUM SEED OIL] [Concomitant]
     Active Substance: HERBALS\LINSEED OIL
     Dosage: UNK
  3. ALEVE [Suspect]
     Active Substance: NAPROXEN SODIUM
     Indication: PAIN
     Dosage: 2 DF
     Route: 048
  4. ALOE VERA [Concomitant]
     Active Substance: ALOE VERA LEAF
     Dosage: UNK
  5. TURMERIC [CURCUMA LONGA] [Concomitant]
     Dosage: UNK
  6. FENUGREEK [TRIGONELLA FOENUM-GRAECUM] [Concomitant]
     Dosage: UNK
  7. MULTIVITAMINS [VITAMINS NOS] [Concomitant]
     Active Substance: VITAMINS
     Dosage: UNK
  8. FISH OIL [Concomitant]
     Active Substance: FISH OIL
     Dosage: UNK

REACTIONS (1)
  - Drug ineffective [Unknown]

NARRATIVE: CASE EVENT DATE: 20190909
